FAERS Safety Report 7469129-8 (Version None)
Quarter: 2011Q2

REPORT INFORMATION
  Report Type: 
  Country: None (occurrence: None)
  Receive Date: 20110510
  Receipt Date: 20110427
  Transmission Date: 20111010
  Serious: Yes (Other)
  Sender: FDA-Public Use
  Company Number: US-ELI_LILLY_AND_COMPANY-US200811004779

PATIENT
  Sex: Male
  Weight: 126.98 kg

DRUGS (2)
  1. ZYPREXA ZYDIS [Suspect]
     Dosage: 90 MG, DAILY (1/D)
  2. ZYPREXA ZYDIS [Suspect]
     Indication: SCHIZOPHRENIA, PARANOID TYPE
     Dosage: 30 MG, DAILY (1/D)
     Dates: start: 20080301

REACTIONS (21)
  - ENURESIS [None]
  - GRAND MAL CONVULSION [None]
  - FEAR [None]
  - FALL [None]
  - LIMB INJURY [None]
  - DIABETES MELLITUS [None]
  - PAIN [None]
  - DEPRESSION [None]
  - WEIGHT INCREASED [None]
  - DYSPNOEA [None]
  - VISUAL ACUITY REDUCED [None]
  - OVERDOSE [None]
  - HEAD INJURY [None]
  - SUICIDAL IDEATION [None]
  - CRYING [None]
  - INCREASED APPETITE [None]
  - DIABETIC NEUROPATHY [None]
  - MOBILITY DECREASED [None]
  - HYPOAESTHESIA [None]
  - RASH [None]
  - DRUG EFFECT DECREASED [None]
